FAERS Safety Report 14393679 (Version 1)
Quarter: 2018Q1

REPORT INFORMATION
  Report Type: Report from Study
  Country: BE (occurrence: BE)
  Receive Date: 20180116
  Receipt Date: 20180116
  Transmission Date: 20180509
  Serious: Yes (Other)
  Sender: FDA-Public Use
  Company Number: BE-MYLANLABS-2018M1002544

PATIENT

DRUGS (1)
  1. CARBOPLATIN. [Suspect]
     Active Substance: CARBOPLATIN
     Indication: NEOPLASM MALIGNANT
     Dosage: AT A TOTAL DOSE PER CYCLE AUC 5 MG/M2/ML/MIN EVERY THREE WEEKS
     Route: 065

REACTIONS (1)
  - Acute kidney injury [Unknown]
